FAERS Safety Report 4390325-0 (Version None)
Quarter: 2004Q2

REPORT INFORMATION
  Report Type: 
  Country: None (occurrence: None)
  Receive Date: 20040630
  Receipt Date: 20040625
  Transmission Date: 20050107
  Serious: Yes (Hospitalization)
  Sender: FDA-Public Use
  Company Number: THQ2004A00554

PATIENT
  Age: 75 Year
  Sex: Male

DRUGS (4)
  1. LEUPROLIDE ACETATE [Suspect]
     Indication: PROSTATE CANCER
     Dosage: 11.25 MG (11.25 MG, 1 IN 3 M) SUBCUTANEOUS
     Route: 058
     Dates: start: 20031008
  2. ATORVASTATIN CALCIUM [Concomitant]
  3. GLYBURIDE [Concomitant]
  4. CELEBREA (CELECOXIB) [Concomitant]

REACTIONS (1)
  - NEPHROTIC SYNDROME [None]
